FAERS Safety Report 18929042 (Version 1)
Quarter: 2021Q1

REPORT INFORMATION
  Report Type: Spontaneous
  Country: FR (occurrence: FR)
  Receive Date: 20210223
  Receipt Date: 20210223
  Transmission Date: 20210420
  Serious: Yes (Hospitalization)
  Sender: FDA-Public Use
  Company Number: FR-TEVA-2021-FR-1881567

PATIENT
  Age: 57 Year
  Sex: Female

DRUGS (3)
  1. RIZATRIPTAN. [Suspect]
     Active Substance: RIZATRIPTAN
     Indication: MIGRAINE
     Dosage: 130 MG
     Route: 048
     Dates: end: 20201115
  2. IBUPROFENE [Suspect]
     Active Substance: IBUPROFEN
     Indication: MIGRAINE
     Dosage: 200 MG
     Route: 048
     Dates: start: 20201205, end: 20201205
  3. IZALGI 500 MG/25 MG, GELULE [Suspect]
     Active Substance: ACETAMINOPHEN\OPIUM
     Indication: MIGRAINE
     Dosage: 1 DF
     Route: 048
     Dates: start: 20201205, end: 20201205

REACTIONS (2)
  - Coronary artery dissection [Recovered/Resolved]
  - Carotid artery dissection [Recovered/Resolved]

NARRATIVE: CASE EVENT DATE: 20201205
